FAERS Safety Report 5671176-3 (Version None)
Quarter: 2008Q1

REPORT INFORMATION
  Report Type: 
  Country: None (occurrence: None)
  Receive Date: 20080313
  Receipt Date: 20080303
  Transmission Date: 20080703
  Serious: Yes (Other)
  Sender: FDA-Public Use
  Company Number: 2008PV034388

PATIENT
  Age: 55 Year
  Sex: Male
  Weight: 161.0269 kg

DRUGS (12)
  1. SYMLIN (PRAMLINTIDE ACETATE)(0.6MG/ML) [Suspect]
     Indication: TYPE 2 DIABETES MELLITUS
     Dosage: 60 MCG; TID; SC; 1 ML; TID; SC
     Route: 058
     Dates: start: 20080215, end: 20080226
  2. SYMLIN (PRAMLINTIDE ACETATE)(0.6MG/ML) [Suspect]
     Indication: TYPE 2 DIABETES MELLITUS
     Dosage: 60 MCG; TID; SC; 1 ML; TID; SC
     Route: 058
     Dates: start: 20080228
  3. ASPIRIN [Concomitant]
  4. DIOVAN HCT [Concomitant]
  5. AMARYL [Concomitant]
  6. LANTUS [Concomitant]
  7. LASIX [Concomitant]
  8. NORVASC [Concomitant]
  9. FENOFIBRATE [Concomitant]
  10. ANALGESICS [Concomitant]
  11. TRAMADOL HCL [Concomitant]
  12. LORTAB [Concomitant]

REACTIONS (8)
  - BLOOD GLUCOSE INCREASED [None]
  - DIZZINESS [None]
  - DRUG PRESCRIBING ERROR [None]
  - FATIGUE [None]
  - FLUSHING [None]
  - LOSS OF CONSCIOUSNESS [None]
  - NAUSEA [None]
  - WEIGHT INCREASED [None]
